FAERS Safety Report 10052357 (Version 1)
Quarter: 2014Q2

REPORT INFORMATION
  Report Type: Spontaneous
  Country: US (occurrence: None)
  Receive Date: 20140401
  Receipt Date: 20140401
  Transmission Date: 20141212
  Serious: Yes (Other)
  Sender: FDA-Public Use
  Company Number: None

PATIENT
  Age: 32 Year
  Sex: Female
  Weight: 56.7 kg

DRUGS (1)
  1. LATISSE [Suspect]
     Indication: EYELASH THICKENING
     Dosage: 1 DROP, ONCE DAILY, APPLIED TO A SURFACE, USUALLY THE SKIN
     Dates: start: 20110301, end: 20120301

REACTIONS (4)
  - Skin discolouration [None]
  - Eye swelling [None]
  - Ocular hyperaemia [None]
  - Eye colour change [None]
